FAERS Safety Report 10906375 (Version 2)
Quarter: 2015Q2

REPORT INFORMATION
  Report Type: Report from Study
  Country: US (occurrence: US)
  Receive Date: 20150312
  Receipt Date: 20150402
  Transmission Date: 20150821
  Serious: Yes (Hospitalization)
  Sender: FDA-Public Use
  Company Number: US-BRISTOL-MYERS SQUIBB COMPANY-BMS-2015-013680

PATIENT
  Age: 68 Year
  Sex: Male

DRUGS (2)
  1. NIVOLUMAB [Suspect]
     Active Substance: NIVOLUMAB
     Indication: METASTATIC MALIGNANT MELANOMA
     Dosage: 1 MG/KG, UNK 16FEB15
     Route: 042
     Dates: start: 20141208
  2. IPILIMUMAB [Suspect]
     Active Substance: IPILIMUMAB
     Indication: METASTATIC MALIGNANT MELANOMA
     Dosage: 3 MG/KG, UNK 16FEB15
     Route: 042
     Dates: start: 20141208

REACTIONS (5)
  - Pyrexia [Recovered/Resolved]
  - Muscular weakness [Recovered/Resolved with Sequelae]
  - Duodenal ulcer [Not Recovered/Not Resolved]
  - Hypopituitarism [Recovered/Resolved with Sequelae]
  - Hypotension [Recovered/Resolved]

NARRATIVE: CASE EVENT DATE: 20150213
